FAERS Safety Report 14008525 (Version 3)
Quarter: 2018Q2

REPORT INFORMATION
  Report Type: Spontaneous
  Country: US (occurrence: US)
  Receive Date: 20170925
  Receipt Date: 20180510
  Transmission Date: 20180711
  Serious: Yes (Death, Other)
  Sender: FDA-Public Use
  Company Number: US-PFIZER INC-2017410587

PATIENT
  Age: 88 Year
  Sex: Female
  Weight: 51.26 kg

DRUGS (10)
  1. IBRANCE [Suspect]
     Active Substance: PALBOCICLIB
     Indication: BREAST CANCER METASTATIC
     Dosage: 100 MG, UNK
  2. OXYCODONE [Concomitant]
     Active Substance: OXYCODONE
     Indication: BONE PAIN
     Dosage: 10 MG, 1X/DAY
     Route: 048
     Dates: start: 201801, end: 20180425
  3. LETROZOLE. [Concomitant]
     Active Substance: LETROZOLE
     Indication: NEOPLASM MALIGNANT
     Dosage: 2.5 MG, DAILY
     Route: 048
  4. VITAMIN D [Concomitant]
     Active Substance: CHOLECALCIFEROL
     Dosage: UNK
  5. MAGNESIUM [Concomitant]
     Active Substance: MAGNESIUM
     Dosage: UNK
  6. IBRANCE [Suspect]
     Active Substance: PALBOCICLIB
     Dosage: 100 MG, CYCLIC (DAILY FOR 21 DAYS)
     Dates: start: 201702
  7. IBRANCE [Suspect]
     Active Substance: PALBOCICLIB
     Dosage: 1 DF, CYCLIC [1 PILL A DAY 21 DAYS ON 7 DAYS OFF BY MOUTH]
     Route: 048
     Dates: start: 201701, end: 201803
  8. ATENOLOL. [Concomitant]
     Active Substance: ATENOLOL
     Indication: HYPERTENSION
     Dosage: 50 MG, 1X/DAY
     Dates: end: 201804
  9. POTASSIUM CHLORIDE. [Concomitant]
     Active Substance: POTASSIUM CHLORIDE
     Dosage: 10 MEQ, UNK
  10. XGEVA [Concomitant]
     Active Substance: DENOSUMAB
     Indication: BONE DISORDER
     Dosage: UNK, MONTHLY(SHOT ONCE A MONTH IN THE FATTY PART OF HER UNDERARM)
     Dates: end: 201804

REACTIONS (5)
  - Nausea [Not Recovered/Not Resolved]
  - Dyspnoea [Fatal]
  - Asthenia [Not Recovered/Not Resolved]
  - Neoplasm progression [Unknown]
  - Deafness [Unknown]

NARRATIVE: CASE EVENT DATE: 201803
